FAERS Safety Report 17458518 (Version 2)
Quarter: 2021Q2

REPORT INFORMATION
  Report Type: Report from Study
  Country: US (occurrence: US)
  Receive Date: 20200225
  Receipt Date: 20210601
  Transmission Date: 20210716
  Serious: Yes (Hospitalization, Other)
  Sender: FDA-Public Use
  Company Number: US-BAUSCH-BL-2018-036236

PATIENT
  Age: 65 Year
  Sex: Male
  Weight: 96.25 kg

DRUGS (2)
  1. HUMULIN NOS [Concomitant]
     Active Substance: INSULIN HUMAN
     Indication: PRODUCT USED FOR UNKNOWN INDICATION
  2. XIFAXAN [Suspect]
     Active Substance: RIFAXIMIN
     Indication: AMMONIA INCREASED
     Route: 048
     Dates: start: 2012

REACTIONS (8)
  - Pain in extremity [Unknown]
  - Therapy interrupted [Unknown]
  - Hospitalisation [Not Recovered/Not Resolved]
  - Liver disorder [Unknown]
  - Spinal cord compression [Unknown]
  - Myositis [Unknown]
  - Limb injury [Unknown]
  - Muscle disorder [Unknown]

NARRATIVE: CASE EVENT DATE: 2020
